FAERS Safety Report 7312646-1 (Version None)
Quarter: 2011Q1

REPORT INFORMATION
  Report Type: 
  Country: None (occurrence: None)
  Receive Date: 20110224
  Receipt Date: 20101206
  Transmission Date: 20110831
  Serious: No
  Sender: FDA-Public Use
  Company Number: US-MYLANLABS-2010S1020363

PATIENT
  Sex: Male

DRUGS (12)
  1. VERAPAMIL [Concomitant]
  2. ASPIRIN [Concomitant]
  3. SINGULAIR [Concomitant]
  4. LORATADINE [Concomitant]
  5. MULTI-VITAMIN [Concomitant]
  6. HYZAAR [Concomitant]
  7. MELOXICAM [Concomitant]
  8. FLECAINIDE ACETATE [Concomitant]
  9. FLONASE [Concomitant]
  10. LANSOPRAZOLE [Suspect]
     Indication: GASTROOESOPHAGEAL REFLUX DISEASE
     Dates: start: 20090101
  11. LEVOTHYROXINE SODIUM [Concomitant]
  12. CRESTOR [Concomitant]

REACTIONS (2)
  - DRUG INEFFECTIVE [None]
  - GASTROOESOPHAGEAL REFLUX DISEASE [None]
